FAERS Safety Report 8419502-6 (Version None)
Quarter: 2012Q2

REPORT INFORMATION
  Report Type: 
  Country: None (occurrence: None)
  Receive Date: 20120607
  Receipt Date: 20111214
  Transmission Date: 20120825
  Serious: Yes (Other)
  Sender: FDA-Public Use
  Company Number: US-BRISTOL-MYERS SQUIBB COMPANY-15589229

PATIENT
  Sex: Male

DRUGS (7)
  1. SUSTIVA [Suspect]
  2. ABILIFY [Interacting]
  3. EFFEXOR [Interacting]
  4. ELEVIT [Interacting]
  5. TRAMADOL HCL [Interacting]
  6. WARFARIN SODIUM [Interacting]
  7. ATRIPLA [Interacting]

REACTIONS (3)
  - VIRAL LOAD INCREASED [None]
  - T-LYMPHOCYTE COUNT DECREASED [None]
  - DRUG INTERACTION [None]
